FAERS Safety Report 4319899-2 (Version None)
Quarter: 2004Q1

REPORT INFORMATION
  Report Type: 
  Country: None (occurrence: None)
  Receive Date: 20040319
  Receipt Date: 20040308
  Transmission Date: 20041129
  Serious: Yes (Hospitalization)
  Sender: FDA-Public Use
  Company Number: PHBS2004US03416

PATIENT
  Age: 63 Year
  Sex: Female

DRUGS (5)
  1. HYDROCHLOROTHIAZIDE [Suspect]
     Indication: HYPERTENSION
     Dosage: 25 MG/DAY
  2. SERTRALINE HCL [Suspect]
     Indication: DEPRESSION
     Dosage: 50 MG/DAY
  3. LORAZEPAM [Concomitant]
     Dosage: 0.5 MG/DAY
  4. ALBUTEROL [Concomitant]
     Dosage: UNK, PRN
  5. IBUPROFEN [Concomitant]
     Dosage: UNK, PRN

REACTIONS (7)
  - BLOOD POTASSIUM DECREASED [None]
  - CONFUSIONAL STATE [None]
  - CONVULSION [None]
  - HEADACHE [None]
  - HYPONATRAEMIA [None]
  - LETHARGY [None]
  - MENTAL STATUS CHANGES [None]
